FAERS Safety Report 5672868-2 (Version None)
Quarter: 2008Q1

REPORT INFORMATION
  Report Type: 
  Country: None (occurrence: None)
  Receive Date: 20080319
  Receipt Date: 20080304
  Transmission Date: 20080703
  Serious: Yes (Death, Congenital Anomaly)
  Sender: FDA-Public Use
  Company Number: A0685052A

PATIENT
  Sex: Female

DRUGS (5)
  1. PAXIL [Suspect]
     Indication: POSTPARTUM DEPRESSION
     Dosage: 20MG PER DAY
     Dates: start: 19951015, end: 19961101
  2. VITAMIN TAB [Concomitant]
  3. IBUPROFEN [Concomitant]
  4. DARVOCET [Concomitant]
  5. TYLENOL (CAPLET) [Concomitant]

REACTIONS (6)
  - CEREBROVASCULAR ACCIDENT [None]
  - COARCTATION OF THE AORTA [None]
  - DEATH [None]
  - DRUG EXPOSURE DURING PREGNANCY [None]
  - GENERAL PHYSICAL HEALTH DETERIORATION [None]
  - HYPOPLASTIC LEFT HEART SYNDROME [None]
